FAERS Safety Report 6102995-7 (Version None)
Quarter: 2009Q1

REPORT INFORMATION
  Report Type: 
  Country: None (occurrence: None)
  Receive Date: 20090305
  Receipt Date: 20090224
  Transmission Date: 20090719
  Serious: Yes (Other)
  Sender: FDA-Public Use
  Company Number: PHEH2009US02008

PATIENT
  Sex: Male

DRUGS (3)
  1. TEKTURNA [Suspect]
  2. BENICAR [Suspect]
  3. CLONIDINE [Suspect]

REACTIONS (2)
  - EYE INFLAMMATION [None]
  - RETINAL DEGENERATION [None]
